FAERS Safety Report 7121405-4 (Version None)
Quarter: 2010Q4

REPORT INFORMATION
  Report Type: 
  Country: None (occurrence: None)
  Receive Date: 20101124
  Receipt Date: 20101111
  Transmission Date: 20110411
  Serious: Yes (Other)
  Sender: FDA-Public Use
  Company Number: PHHY2010US65883

PATIENT
  Sex: Female

DRUGS (2)
  1. DIOVAN [Suspect]
     Dosage: 160 MG
     Dates: start: 20100620, end: 20100624
  2. FISH OIL [Concomitant]

REACTIONS (11)
  - BLOOD PRESSURE INCREASED [None]
  - DYSURIA [None]
  - EAR DISORDER [None]
  - EYE DISORDER [None]
  - FATIGUE [None]
  - GROIN PAIN [None]
  - INSOMNIA [None]
  - OEDEMA PERIPHERAL [None]
  - PALPITATIONS [None]
  - PANIC ATTACK [None]
  - RENAL PAIN [None]
